FAERS Safety Report 8353790-X (Version None)
Quarter: 2012Q2

REPORT INFORMATION
  Report Type: 
  Country: None (occurrence: None)
  Receive Date: 20120511
  Receipt Date: 20111114
  Transmission Date: 20120825
  Serious: No
  Sender: FDA-Public Use
  Company Number: US-GLAXOSMITHKLINE-A0953832A

PATIENT
  Sex: Male

DRUGS (6)
  1. NEXAVAR [Concomitant]
  2. ZOFRAN [Concomitant]
     Route: 065
  3. CHEWABLE ASPIRIN [Concomitant]
     Dosage: 81MG UNKNOWN
     Route: 065
  4. OXYCODONE HCL AND ACETAMINOPHEN [Concomitant]
  5. TYKERB [Suspect]
     Indication: PRODUCT USED FOR UNKNOWN INDICATION
     Dosage: 1000MG PER DAY
     Route: 048
  6. OXYCONTIN [Concomitant]
     Dosage: 30MG UNKNOWN

REACTIONS (2)
  - DRUG INEFFECTIVE [None]
  - CARDIAC DISORDER [None]
